FAERS Safety Report 7622916-5 (Version None)
Quarter: 2011Q3

REPORT INFORMATION
  Report Type: 
  Country: None (occurrence: None)
  Receive Date: 20110720
  Receipt Date: 20110706
  Transmission Date: 20111222
  Serious: Yes (Hospitalization, Other)
  Sender: FDA-Public Use
  Company Number: US-BAYER-2011-045290

PATIENT
  Age: 49 Year
  Sex: Female
  Weight: 68.027 kg

DRUGS (7)
  1. ZYRTEC [Concomitant]
     Route: 048
  2. ATROVENT [Concomitant]
     Dosage: 2.5 UNK, UNK
     Dates: start: 20101213
  3. YASMIN [Suspect]
     Indication: CONTRACEPTION
     Dosage: UNK
     Dates: start: 20060224, end: 20101007
  4. TORADOL [Concomitant]
     Dosage: 30 MG, UNK
     Dates: start: 20101213
  5. FLONASE [Concomitant]
     Route: 045
  6. ZITHROMAX [Concomitant]
     Dosage: 250 MG, UNK
     Dates: start: 20101213
  7. NAPROXEN SODIUM + PSEUDOEPHEDRINE [Concomitant]
     Dosage: 500 MG, UNK
     Route: 048
     Dates: start: 20101214

REACTIONS (3)
  - PULMONARY EMBOLISM [None]
  - EMOTIONAL DISTRESS [None]
  - INJURY [None]
